FAERS Safety Report 10762107 (Version 1)
Quarter: 2015Q1

REPORT INFORMATION
  Report Type: Spontaneous
  Country: US (occurrence: None)
  Receive Date: 20150128
  Receipt Date: 20150128
  Transmission Date: 20150721
  Serious: Yes (Other)
  Sender: FDA-Public Use
  Company Number: 1369146

PATIENT
  Age: 53 Year
  Sex: Male

DRUGS (2)
  1. RITUXAN [Suspect]
     Active Substance: RITUXIMAB
     Indication: CHRONIC LYMPHOCYTIC LEUKAEMIA
     Dosage: WEEKLY X 4 FOR 4 CYCLES ALONE, 6 CYCLES WITH FLUDARABINE
  2. FLUDARABINE [Concomitant]
     Active Substance: FLUDARABINE PHOSPHATE

REACTIONS (2)
  - Meningitis aseptic [None]
  - Chronic lymphocytic leukaemia recurrent [None]

NARRATIVE: CASE EVENT DATE: 2007
